FAERS Safety Report 8336450-0 (Version None)
Quarter: 2012Q2

REPORT INFORMATION
  Report Type: 
  Country: None (occurrence: None)
  Receive Date: 20120504
  Receipt Date: 20120430
  Transmission Date: 20120825
  Serious: Yes (Hospitalization)
  Sender: FDA-Public Use
  Company Number: US-PFIZER INC-2012106411

PATIENT
  Sex: Female
  Weight: 56.689 kg

DRUGS (3)
  1. IBUPROFEN (ADVIL) [Suspect]
     Indication: PAIN
     Dosage: UNK, AS NEEDED
     Route: 048
     Dates: start: 20120421, end: 20120421
  2. XANAX [Concomitant]
     Dosage: UNK
  3. TYLENOL (CAPLET) [Concomitant]
     Dosage: UNK

REACTIONS (4)
  - EYE DISORDER [None]
  - RASH GENERALISED [None]
  - URTICARIA [None]
  - MENTAL DISORDER [None]
